FAERS Safety Report 4952166-2 (Version None)
Quarter: 2006Q1

REPORT INFORMATION
  Report Type: 
  Country: None (occurrence: None)
  Receive Date: 20060317
  Receipt Date: 20060309
  Transmission Date: 20060701
  Serious: No
  Sender: FDA-Public Use
  Company Number: 222891

PATIENT
  Age: 17 Year
  Sex: Female
  Weight: 50.7 kg

DRUGS (3)
  1. NUTROPIN AQ [Suspect]
     Indication: HYPOPITUITARISM
     Dosage: 1.2 MG, QD, UNK
     Dates: start: 20020320
  2. VITAMIN D             (CHOLECALCIFEROL0 [Concomitant]
  3. CALCIUM              (CALCIUM NOS) [Concomitant]

REACTIONS (1)
  - OSTEOPOROSIS [None]
